FAERS Safety Report 5079238-9 (Version None)
Quarter: 2006Q3

REPORT INFORMATION
  Report Type: 
  Country: None (occurrence: None)
  Receive Date: 20060809
  Receipt Date: 20060727
  Transmission Date: 20061208
  Serious: Yes (Hospitalization)
  Sender: FDA-Public Use
  Company Number: 2006094095

PATIENT
  Age: 52 Year
  Sex: Female

DRUGS (3)
  1. CELEBREX [Suspect]
     Indication: ARTHRITIS
     Dosage: 400 MG (200 MG, 2 IN 1 D)
     Dates: start: 20020311, end: 20020717
  2. BEXTRA [Suspect]
     Indication: ARTHRITIS
     Dosage: SEE IMAGE
     Dates: start: 20021105, end: 20021128
  3. BEXTRA [Suspect]
     Indication: ARTHRITIS
     Dosage: SEE IMAGE
     Dates: start: 20021129, end: 20030423

REACTIONS (2)
  - ANXIETY [None]
  - DEEP VEIN THROMBOSIS [None]
